FAERS Safety Report 21463230 (Version 4)
Quarter: 2023Q2

REPORT INFORMATION
  Report Type: Spontaneous
  Country: US (occurrence: US)
  Receive Date: 20221017
  Receipt Date: 20230529
  Transmission Date: 20230722
  Serious: No
  Sender: FDA-Public Use
  Company Number: US-SA-SAC20221012000201

PATIENT
  Sex: Female

DRUGS (3)
  1. AUBAGIO [Suspect]
     Active Substance: TERIFLUNOMIDE
     Indication: Multiple sclerosis
     Dosage: 14 MG, QD
     Route: 048
     Dates: start: 20190927
  2. CLARITIN [Concomitant]
     Active Substance: LORATADINE
     Dosage: UNK, QD
  3. ZYRTEC [Concomitant]
     Active Substance: CETIRIZINE HYDROCHLORIDE
     Dosage: UNK

REACTIONS (14)
  - Bladder disorder [Unknown]
  - Abdominal discomfort [Unknown]
  - Balance disorder [Unknown]
  - Depression [Unknown]
  - Dizziness [Unknown]
  - Fall [Not Recovered/Not Resolved]
  - Fatigue [Unknown]
  - Urinary tract disorder [Unknown]
  - Mobility decreased [Unknown]
  - Musculoskeletal stiffness [Unknown]
  - Muscle spasticity [Unknown]
  - Cognitive disorder [Unknown]
  - Hypertension [Unknown]
  - Alopecia [Unknown]
